FAERS Safety Report 4907230-0 (Version None)
Quarter: 2006Q1

REPORT INFORMATION
  Report Type: 
  Country: None (occurrence: None)
  Receive Date: 20060207
  Receipt Date: 20060202
  Transmission Date: 20060701
  Serious: Yes (Death, Other)
  Sender: FDA-Public Use
  Company Number: TPA2006A00164

PATIENT
  Age: 26 Year
  Sex: Female
  Weight: 149.2334 kg

DRUGS (3)
  1. ACTOPLUS MET [Suspect]
     Dosage: 15/500 MG, 2 IN 1 D, PER ORAL
     Route: 048
     Dates: start: 20060126
  2. NORTREL (NORMENSAL) [Suspect]
     Indication: UTERINE HAEMORRHAGE
     Dosage: 1/35
     Dates: start: 20050901
  3. AVANDIA [Concomitant]

REACTIONS (3)
  - CARDIO-RESPIRATORY ARREST [None]
  - GLYCOSYLATED HAEMOGLOBIN INCREASED [None]
  - PULMONARY EMBOLISM [None]
